FAERS Safety Report 10164417 (Version 1)
Quarter: 2014Q2

REPORT INFORMATION
  Report Type: Spontaneous
  Country: US (occurrence: US)
  Receive Date: 20140510
  Receipt Date: 20140510
  Transmission Date: 20141212
  Serious: No
  Sender: FDA-Public Use
  Company Number: 2007PV030175

PATIENT
  Age: 69 Year
  Sex: Male

DRUGS (3)
  1. EXENATIDE PEN DISPOSABLE [Suspect]
     Indication: TYPE 2 DIABETES MELLITUS
     Route: 058
     Dates: start: 20061215
  2. METFORMIN HCL [Concomitant]
     Indication: TYPE 2 DIABETES MELLITUS
     Route: 048
     Dates: start: 2003
  3. GLIPIZIDE [Concomitant]
     Indication: TYPE 2 DIABETES MELLITUS
     Route: 048
     Dates: start: 2003

REACTIONS (7)
  - Decreased appetite [Not Recovered/Not Resolved]
  - Blood glucose decreased [Unknown]
  - Eructation [Not Recovered/Not Resolved]
  - Nausea [Recovered/Resolved]
  - Feeling jittery [Unknown]
  - Asthenia [Unknown]
  - Somnolence [Unknown]
